FAERS Safety Report 7072532-1 (Version None)
Quarter: 2010Q4

REPORT INFORMATION
  Report Type: 
  Country: None (occurrence: None)
  Receive Date: 20101029
  Receipt Date: 20100216
  Transmission Date: 20110411
  Serious: No
  Sender: FDA-Public Use
  Company Number: A0843484A

PATIENT
  Age: 79 Year
  Sex: Female

DRUGS (4)
  1. ADVAIR DISKUS 100/50 [Suspect]
     Indication: BRONCHITIS
     Dosage: 1PUFF TWICE PER DAY
     Route: 055
     Dates: start: 20090513
  2. ANTIHISTAMINE [Concomitant]
  3. PROAIR HFA [Concomitant]
  4. UNKNOWN MEDICATION [Concomitant]

REACTIONS (6)
  - ABDOMINAL DISCOMFORT [None]
  - ADVERSE EVENT [None]
  - DYSPEPSIA [None]
  - GASTROOESOPHAGEAL REFLUX DISEASE [None]
  - THERMAL BURN [None]
  - THROAT IRRITATION [None]
